FAERS Safety Report 20797775 (Version 1)
Quarter: 2022Q2

REPORT INFORMATION
  Report Type: Spontaneous
  Country: US (occurrence: None)
  Receive Date: 20220506
  Receipt Date: 20220506
  Transmission Date: 20220721
  Serious: No
  Sender: FDA-Public Use
  Company Number: None

PATIENT
  Sex: Male

DRUGS (1)
  1. ENTYVIO [Suspect]
     Active Substance: VEDOLIZUMAB
     Indication: Colitis
     Dosage: 300MG/VL EVERY 8 WEEKS INFUSION
     Dates: start: 20220203

REACTIONS (2)
  - Cytomegalovirus infection [None]
  - Colitis ulcerative [None]
